FAERS Safety Report 5802721-2 (Version None)
Quarter: 2008Q2

REPORT INFORMATION
  Report Type: 
  Country: None (occurrence: None)
  Receive Date: 20080627
  Receipt Date: 20070917
  Transmission Date: 20081010
  Serious: Yes (Other)
  Sender: FDA-Public Use
  Company Number: 2007-04234

PATIENT

DRUGS (3)
  1. INFED [Suspect]
     Dosage: INTRAVENOUS; INTRAVENOUS
     Route: 042
     Dates: start: 20070101, end: 20070101
  2. INFED [Suspect]
     Dosage: INTRAVENOUS; INTRAVENOUS
     Route: 042
     Dates: start: 20070101, end: 20070101
  3. INFED [Suspect]

REACTIONS (4)
  - ANAPHYLACTIC REACTION [None]
  - BACK PAIN [None]
  - CHEST PAIN [None]
  - DYSPNOEA [None]
